FAERS Safety Report 6610548-7 (Version None)
Quarter: 2010Q1

REPORT INFORMATION
  Report Type: 
  Country: None (occurrence: None)
  Receive Date: 20100302
  Receipt Date: 20100218
  Transmission Date: 20100710
  Serious: Yes (Hospitalization)
  Sender: FDA-Public Use
  Company Number: US-PFIZER INC-2010009797

PATIENT
  Sex: Female
  Weight: 68.481 kg

DRUGS (13)
  1. DILANTIN-125 [Suspect]
     Dosage: UNK
     Dates: start: 20091209, end: 20091221
  2. AMBIEN [Suspect]
  3. VICODIN [Suspect]
  4. VALIUM [Suspect]
  5. TOPAMAX [Suspect]
     Dosage: UNK
  6. LEXAPRO [Concomitant]
     Dosage: 20 MG, 1X/DAY
  7. METFORMIN [Concomitant]
     Dosage: 500 MG, 2X/DAY
  8. DROSPIRENONE/ESTRADIOL [Concomitant]
     Indication: CONTRACEPTIVE CAP
     Dosage: UNK, 1X/DAY
     Route: 048
  9. ALBUTEROL [Concomitant]
     Dosage: UNK; AS NEEDED
     Route: 055
  10. IBUPROFEN [Concomitant]
     Dosage: UNK; AS NEEDED
  11. TRAZODONE [Concomitant]
     Dosage: 50 MG, 1X/DAY
  12. VISTARIL [Concomitant]
     Dosage: 50 MG, Q6HOURS AS NEEDED
  13. ABILIFY [Concomitant]
     Dosage: 5 MG, 1X/DAY

REACTIONS (3)
  - AFFECTIVE DISORDER [None]
  - DRUG DEPENDENCE [None]
  - DRUG RASH WITH EOSINOPHILIA AND SYSTEMIC SYMPTOMS [None]
